FAERS Safety Report 7517133-3 (Version None)
Quarter: 2011Q2

REPORT INFORMATION
  Report Type: 
  Country: None (occurrence: None)
  Receive Date: 20110526
  Receipt Date: 20110526
  Transmission Date: 20111010
  Serious: No
  Sender: FDA-Public Use
  Company Number: None

PATIENT
  Sex: Female

DRUGS (1)
  1. CHLORDIAZEPOXIDE HCL AND CLIDINIUM BROMIDE [Suspect]
     Dosage: 5MG/2.5MG ORAL (047)
     Route: 048

REACTIONS (3)
  - PRODUCT TAMPERING [None]
  - CAPSULE PHYSICAL ISSUE [None]
  - FEELING ABNORMAL [None]
